FAERS Safety Report 13735986 (Version 1)
Quarter: 2017Q3

REPORT INFORMATION
  Report Type: Other
  Country: FR (occurrence: FR)
  Receive Date: 20170710
  Receipt Date: 20170710
  Transmission Date: 20171127
  Serious: Yes (Hospitalization, Other)
  Sender: FDA-Public Use
  Company Number: FR-ASTELLAS-2017US026493

PATIENT
  Age: 36 Year
  Sex: Male

DRUGS (6)
  1. XANAX [Suspect]
     Active Substance: ALPRAZOLAM
     Indication: ANXIETY
     Dosage: 0.25 MG (1 DF), TWICE DAILY
     Route: 048
     Dates: start: 2015
  2. COVERAM [Suspect]
     Active Substance: AMLODIPINE\PERINDOPRIL
     Indication: HYPERTENSION
     Dosage: 1 DF (5 MG/10 MG), ONCE DAILY
     Route: 048
     Dates: start: 2014
  3. XANAX [Suspect]
     Active Substance: ALPRAZOLAM
     Dosage: UNK UNK, UNKNOWN FREQ.
     Route: 065
  4. COVERAM [Suspect]
     Active Substance: AMLODIPINE\PERINDOPRIL
     Dosage: 5 MG / 5 MG, UNKNOWN FREQ.
     Route: 048
  5. VESICARE [Suspect]
     Active Substance: SOLIFENACIN SUCCINATE
     Indication: URINARY TRACT DISORDER
     Route: 048
     Dates: start: 2015
  6. TAMSULOSIN [Suspect]
     Active Substance: TAMSULOSIN
     Indication: URINARY TRACT DISORDER
     Route: 048
     Dates: start: 2015

REACTIONS (8)
  - Syncope [Recovered/Resolved]
  - Vertigo [Unknown]
  - Malaise [Unknown]
  - Tremor [Unknown]
  - Dehydration [Unknown]
  - Loss of consciousness [Unknown]
  - Photopsia [Unknown]
  - Diarrhoea [Unknown]

NARRATIVE: CASE EVENT DATE: 20170613
